FAERS Safety Report 5218793-2 (Version None)
Quarter: 2007Q1

REPORT INFORMATION
  Report Type: 
  Country: None (occurrence: None)
  Receive Date: 20070125
  Receipt Date: 20061218
  Transmission Date: 20070707
  Serious: Yes (Other)
  Sender: FDA-Public Use
  Company Number: JP-SP-2006-01989

PATIENT
  Age: 66 Year
  Sex: Male

DRUGS (1)
  1. IMMUCYST [Suspect]
     Indication: BLADDER CANCER
     Route: 043
     Dates: start: 20060104, end: 20060206

REACTIONS (1)
  - MALE GENITAL TRACT TUBERCULOSIS [None]
